FAERS Safety Report 6749054-8 (Version None)
Quarter: 2010Q2

REPORT INFORMATION
  Report Type: 
  Country: None (occurrence: None)
  Receive Date: 20100601
  Receipt Date: 20100430
  Transmission Date: 20101027
  Serious: No
  Sender: FDA-Public Use
  Company Number: US-BAYER-201015040BCC

PATIENT
  Sex: Male

DRUGS (1)
  1. DESONATE [Suspect]
     Indication: DERMATITIS
     Route: 065

REACTIONS (2)
  - ALOPECIA [None]
  - DERMATITIS [None]
